FAERS Safety Report 6034999-7 (Version None)
Quarter: 2009Q1

REPORT INFORMATION
  Report Type: 
  Country: None (occurrence: None)
  Receive Date: 20090109
  Receipt Date: 20090109
  Transmission Date: 20090719
  Serious: Yes (Hospitalization)
  Sender: FDA-Public Use
  Company Number: None

PATIENT
  Age: 76 Year
  Sex: Male
  Weight: 65 kg

DRUGS (1)
  1. TRELSAR [Suspect]
     Indication: PROSTATE CANCER

REACTIONS (5)
  - CEREBROVASCULAR ACCIDENT [None]
  - FACIAL PALSY [None]
  - FALL [None]
  - HEADACHE [None]
  - HYPERTENSION [None]
